FAERS Safety Report 16140342 (Version 1)
Quarter: 2019Q1

REPORT INFORMATION
  Report Type: Spontaneous
  Country: US (occurrence: US)
  Receive Date: 20190226
  Receipt Date: 20190226
  Transmission Date: 20190418
  Serious: Yes (Life-Threatening, Hospitalization, Disabling, Other)
  Sender: FDA-Public Use
  Company Number: None

PATIENT
  Age: 57 Year
  Sex: Female
  Weight: 56.7 kg

DRUGS (18)
  1. MYBERTRIQ [Concomitant]
  2. TOPAMAX [Concomitant]
     Active Substance: TOPIRAMATE
  3. REMERON [Concomitant]
     Active Substance: MIRTAZAPINE
  4. VITAMIN D3 [Concomitant]
     Active Substance: CHOLECALCIFEROL
  5. CLONAZEPAM. [Concomitant]
     Active Substance: CLONAZEPAM
  6. VITAMIN B12 [Concomitant]
     Active Substance: CYANOCOBALAMIN
  7. LINZESS [Concomitant]
     Active Substance: LINACLOTIDE
  8. FEVERFEW [Concomitant]
     Active Substance: FEVERFEW
  9. MAGNESIUM [Concomitant]
     Active Substance: MAGNESIUM
  10. ABILIFY [Concomitant]
     Active Substance: ARIPIPRAZOLE
  11. RANITIDINE. [Concomitant]
     Active Substance: RANITIDINE
  12. DHEA [Concomitant]
     Active Substance: PRASTERONE
  13. B6 [Concomitant]
     Active Substance: PYRIDOXINE HYDROCHLORIDE
  14. B2 [Concomitant]
  15. LATUDA [Suspect]
     Active Substance: LURASIDONE HYDROCHLORIDE
     Indication: PRODUCT USED FOR UNKNOWN INDICATION
     Dosage: ?          QUANTITY:1/2 TABLET;?
     Route: 048
     Dates: start: 20190121, end: 20190206
  16. PROZAC [Concomitant]
     Active Substance: FLUOXETINE HYDROCHLORIDE
  17. ZINC. [Concomitant]
     Active Substance: ZINC
  18. MAVALT [Concomitant]

REACTIONS (3)
  - Suicidal ideation [None]
  - Skin laceration [None]
  - Intentional self-injury [None]

NARRATIVE: CASE EVENT DATE: 20190206
